FAERS Safety Report 10220622 (Version 1)
Quarter: 2014Q2

REPORT INFORMATION
  Report Type: Other
  Country: GB (occurrence: GB)
  Receive Date: 20140606
  Receipt Date: 20140606
  Transmission Date: 20141212
  Serious: Yes (Other)
  Sender: FDA-Public Use
  Company Number: GB-GLENMARK GENERICS INC.-2014GMK009626

PATIENT
  Age: 42 Year
  Sex: Male

DRUGS (28)
  1. TOPIRAMATE [Suspect]
     Indication: PRODUCT USED FOR UNKNOWN INDICATION
     Dosage: 25 MG, UNK
  2. CARBAMAZEPINE [Suspect]
     Indication: CONVULSION
     Dosage: 200 MG, BID
     Dates: start: 1988
  3. CARBAMAZEPINE [Suspect]
     Dosage: 100 MG, BID
  4. CARBAMAZEPINE [Suspect]
     Dosage: 200 MG, BID
  5. CARBAMAZEPINE [Suspect]
     Dosage: 300 MG, BID
  6. LAMICTAL [Suspect]
     Indication: EPILEPSY
     Dosage: 400 MG, UNK
     Dates: start: 200309
  7. LAMICTAL [Suspect]
     Dosage: UNK
  8. LAMICTAL [Suspect]
     Dosage: 225 MG, UNK
  9. LAMICTAL [Suspect]
     Dosage: 250 MG, UNK
  10. LAMICTAL [Suspect]
     Dosage: 275 MG, UNK
  11. LAMICTAL [Suspect]
     Dosage: 300 MG, UNK
  12. LAMOTRIGINE [Suspect]
     Indication: PRODUCT USED FOR UNKNOWN INDICATION
     Dosage: 150 MG, BID
  13. LAMOTRIGINE [Suspect]
     Dosage: 200 MG, UNK
  14. LAMOTRIGINE [Suspect]
     Dosage: 300 MG, UNK
  15. LAMOTRIGINE [Suspect]
     Dosage: 500 MG, UNK
  16. LAMOTRIGINE [Suspect]
     Dosage: UNK
  17. MIDAZOLAM [Suspect]
     Indication: PRODUCT USED FOR UNKNOWN INDICATION
     Dosage: UNK
     Route: 002
  18. TEGRETOL [Suspect]
     Indication: EPILEPSY
     Dosage: 300 MG, BID
  19. TEGRETOL [Suspect]
     Dosage: 1000 MG, UNK
  20. TEGRETOL [Suspect]
     Dosage: 300 MG, BID
  21. TEGRETOL [Suspect]
     Dosage: 200 MG, UNK
  22. TEGRETOL [Suspect]
     Dosage: 400 MG, UNK
  23. TEGRETOL [Suspect]
     Dosage: 500 MG, UNK
     Dates: start: 1989, end: 20140101
  24. TEGRETOL [Suspect]
     Dosage: 600 MG, UNK
  25. VALPROIC ACID [Suspect]
     Indication: PRODUCT USED FOR UNKNOWN INDICATION
     Dosage: 400 MG, UNK
  26. VALPROIC ACID [Suspect]
     Dosage: UNK
  27. ADCAL D3 [Concomitant]
     Indication: PRODUCT USED FOR UNKNOWN INDICATION
     Dosage: UNK
  28. VITAMIN D                          /00107901/ [Concomitant]
     Indication: PRODUCT USED FOR UNKNOWN INDICATION
     Dosage: UNK

REACTIONS (44)
  - Abnormal behaviour [Unknown]
  - Petit mal epilepsy [Unknown]
  - Aggression [Unknown]
  - Agitation [Unknown]
  - Depressed level of consciousness [Unknown]
  - Anxiety [Unknown]
  - Ataxia [Not Recovered/Not Resolved]
  - Balance disorder [Unknown]
  - Bone density decreased [Unknown]
  - Catatonia [Unknown]
  - Cerebral ventricle dilatation [Unknown]
  - Complex partial seizures [Unknown]
  - Decreased appetite [Unknown]
  - Diarrhoea [Unknown]
  - Distractibility [Unknown]
  - Drug level increased [Unknown]
  - Toxicity to various agents [Recovered/Resolved]
  - Emotional distress [Unknown]
  - Emotional disorder [Unknown]
  - Euphoric mood [Unknown]
  - Fear [Unknown]
  - Epilepsy [Unknown]
  - Frustration [Unknown]
  - Gait disturbance [Unknown]
  - Gastrointestinal disorder [Unknown]
  - Hallucination [Unknown]
  - Irritability [Unknown]
  - Dyskinesia [Not Recovered/Not Resolved]
  - Depressed mood [Unknown]
  - Microcephaly [Unknown]
  - Psychotic disorder [Unknown]
  - Convulsion [Unknown]
  - Malaise [Unknown]
  - Insomnia [Unknown]
  - Staring [Unknown]
  - Hyperexplexia [Unknown]
  - Musculoskeletal stiffness [Unknown]
  - Stress [Unknown]
  - Suspiciousness [Unknown]
  - Fatigue [Unknown]
  - Tonic clonic movements [Not Recovered/Not Resolved]
  - Tremor [Unknown]
  - Upper respiratory tract infection [Unknown]
  - Generalised tonic-clonic seizure [Unknown]
